FAERS Safety Report 18740013 (Version 1)
Quarter: 2021Q1

REPORT INFORMATION
  Report Type: Spontaneous
  Country: CN (occurrence: CN)
  Receive Date: 20210114
  Receipt Date: 20210114
  Transmission Date: 20210419
  Serious: Yes (Other)
  Sender: FDA-Public Use
  Company Number: CN-SUN PHARMACEUTICAL INDUSTRIES LTD-2020R1-272454

PATIENT
  Age: 79 Year
  Sex: Female

DRUGS (4)
  1. KETOTIFEN [Concomitant]
     Active Substance: KETOTIFEN
     Indication: COUGH
     Dosage: 1 MILLIGRAM, DAILY
     Route: 065
  2. ALPRAZOLAM. [Interacting]
     Active Substance: ALPRAZOLAM
     Indication: INSOMNIA
     Dosage: 0.4 MILLIGRAM, DAILY
     Route: 065
  3. ZOLPIDEM [Concomitant]
     Active Substance: ZOLPIDEM TARTRATE
     Indication: INSOMNIA
     Dosage: 10 MILLIGRAM, DAILY
     Route: 065
  4. CLARITHROMYCIN. [Suspect]
     Active Substance: CLARITHROMYCIN
     Indication: SINUSITIS
     Dosage: 250 MILLIGRAM, BID
     Route: 065

REACTIONS (4)
  - Amnesia [Unknown]
  - Muscular weakness [Unknown]
  - Lethargy [Unknown]
  - Drug interaction [Unknown]
